FAERS Safety Report 5287422-4 (Version None)
Quarter: 2007Q1

REPORT INFORMATION
  Report Type: 
  Country: None (occurrence: None)
  Receive Date: 20070116
  Receipt Date: 20060927
  Transmission Date: 20070707
  Serious: No
  Sender: FDA-Public Use
  Company Number: 2006SP003443

PATIENT
  Age: 56 Year
  Sex: Female
  Weight: 43.0917 kg

DRUGS (5)
  1. LUNESTA [Suspect]
     Dosage: 4 MG ORAL
     Route: 048
     Dates: start: 20060830, end: 20061024
  2. CIPROFLOXACIN [Concomitant]
  3. HYDROCHLORIDE [Concomitant]
  4. KLONOPIN [Concomitant]
  5. MIRALAX [Concomitant]

REACTIONS (2)
  - POLLAKIURIA [None]
  - URINARY RETENTION [None]
